FAERS Safety Report 9523332 (Version 1)
Quarter: 2013Q1

REPORT INFORMATION
  Report Type: Spontaneous
  Country: US (occurrence: None)
  Receive Date: 20130305
  Receipt Date: 20130305
  Transmission Date: 20140127
  Serious: Yes (Other)
  Sender: FDA-Public Use
  Company Number: 163-21880-12072456

PATIENT
  Age: 71 Year
  Sex: Male
  Weight: 56.7 kg

DRUGS (6)
  1. REVLIMID [Suspect]
     Indication: PLASMA CELL MYELOMA
     Dosage: 25 MG, 21 IN 28 D, PO
     Route: 048
     Dates: start: 20120514
  2. VELCADE (UNKNOWN) [Suspect]
     Indication: PRODUCT USED FOR UNKNOWN INDICATION
     Dosage: 2 MG, DAY 1 AND 4, IV
     Route: 042
     Dates: start: 20120820, end: 20120827
  3. ASPIRIN (ACETYLSALICYLIC ACID) (UNKNOWN) (ACETYLSALICYLIC ACID) [Concomitant]
  4. FENTANYL (FENTANYL) (UNKNOWN) (FENTANYL) [Concomitant]
  5. OXYCODONE (OXYCODONE) (UNKNOWN) (OXYCODONE) [Concomitant]
  6. TRIAM/HCTZ (DYAZIDE) UNKNOWN) [Concomitant]

REACTIONS (3)
  - Neutrophil count decreased [None]
  - White blood cell count decreased [None]
  - Rash pruritic [None]
